FAERS Safety Report 14196542 (Version 1)
Quarter: 2017Q4

REPORT INFORMATION
  Report Type: Spontaneous
  Country: US (occurrence: US)
  Receive Date: 20171116
  Receipt Date: 20171116
  Transmission Date: 20180321
  Serious: Yes (Hospitalization)
  Sender: FDA-Public Use
  Company Number: US-WARNER CHILCOTT-2017-000059

PATIENT
  Age: 62 Year
  Sex: Female
  Weight: 73 kg

DRUGS (4)
  1. URINARY ANTISPASMODICS [Suspect]
     Active Substance: UNSPECIFIED INGREDIENT
     Indication: MICTURITION URGENCY
     Dosage: 50 MG, QD
     Route: 048
  2. URINARY ANTISPASMODICS [Suspect]
     Active Substance: UNSPECIFIED INGREDIENT
     Indication: POLLAKIURIA
     Dosage: 25 MG, QD
     Route: 048
     Dates: start: 20140528
  3. URINARY ANTISPASMODICS [Suspect]
     Active Substance: UNSPECIFIED INGREDIENT
     Indication: URINARY INCONTINENCE
  4. ENABLEX [Suspect]
     Active Substance: DARIFENACIN HYDROBROMIDE
     Dosage: UNK, AT NIGHT
     Route: 065

REACTIONS (3)
  - Constipation [Unknown]
  - Tinnitus [Unknown]
  - Ankle fracture [Recovering/Resolving]

NARRATIVE: CASE EVENT DATE: 201407
